FAERS Safety Report 26026697 (Version 1)
Quarter: 2025Q4

REPORT INFORMATION
  Report Type: Spontaneous
  Country: CA (occurrence: CA)
  Receive Date: 20251111
  Receipt Date: 20251111
  Transmission Date: 20260118
  Serious: Yes (Hospitalization)
  Sender: TEVA
  Company Number: CA-TEVA-VS-3390306

PATIENT
  Age: 3 Month
  Sex: Female

DRUGS (2)
  1. PROPRANOLOL [Suspect]
     Active Substance: PROPRANOLOL HYDROCHLORIDE
     Indication: Hypertrophic cardiomyopathy
     Route: 065
  2. TRAMETINIB [Suspect]
     Active Substance: TRAMETINIB
     Indication: Hypertrophic cardiomyopathy
     Route: 065

REACTIONS (4)
  - Drug ineffective [Unknown]
  - Alopecia [Recovered/Resolved]
  - Off label use [Unknown]
  - Drug eruption [Recovered/Resolved]
